FAERS Safety Report 6033051-4 (Version None)
Quarter: 2009Q1

REPORT INFORMATION
  Report Type: 
  Country: None (occurrence: None)
  Receive Date: 20090105
  Receipt Date: 20080812
  Transmission Date: 20090719
  Serious: Yes (Hospitalization)
  Sender: FDA-Public Use
  Company Number: US-001706

PATIENT
  Age: 86 Year
  Sex: Female
  Weight: 63.6 kg

DRUGS (2)
  1. PROHANCE [Suspect]
     Indication: BACK PAIN
     Dosage: 13ML QD INTRAVENOUS (NOT OTHERWISE SPECIFIED
     Route: 042
     Dates: start: 20080812, end: 20080812
  2. PROHANCE [Suspect]
     Indication: NUCLEAR MAGNETIC RESONANCE IMAGING
     Dosage: 13ML QD INTRAVENOUS (NOT OTHERWISE SPECIFIED
     Route: 042
     Dates: start: 20080812, end: 20080812

REACTIONS (1)
  - ANAPHYLACTOID SHOCK [None]
